FAERS Safety Report 8463581 (Version 3)
Quarter: 2013Q1

REPORT INFORMATION
  Report Type: Spontaneous
  Country: US (occurrence: US)
  Receive Date: 20120316
  Receipt Date: 20130108
  Transmission Date: 20140127
  Serious: Yes (Hospitalization)
  Sender: FDA-Public Use
  Company Number: US-BAYER-2012-023926

PATIENT
  Age: 28 Year
  Sex: Female
  Weight: 56.69 kg

DRUGS (5)
  1. YAZ [Suspect]
     Indication: CONTRACEPTION
     Dosage: UNK
     Dates: start: 20080112, end: 20080711
  2. YASMIN [Suspect]
  3. IBUPROFEN [Concomitant]
     Indication: PAIN
     Dosage: 800 MG, TID AS NEEDED
     Route: 048
     Dates: start: 20080428
  4. DIOVAN [Concomitant]
     Indication: HYPERTENSION
     Dosage: UNK
     Dates: start: 2006, end: 2009
  5. BENICAR [Concomitant]
     Indication: HYPERTENSION

REACTIONS (9)
  - Transient ischaemic attack [None]
  - Injury [None]
  - Pain [None]
  - Emotional distress [None]
  - Muscular weakness [None]
  - General physical health deterioration [None]
  - Anxiety [None]
  - Pain [None]
  - Mental disorder [None]
